FAERS Safety Report 9091669 (Version 15)
Quarter: 2015Q2

REPORT INFORMATION
  Report Type: Report from Study
  Country: CZ (occurrence: CZ)
  Receive Date: 20130131
  Receipt Date: 20150519
  Transmission Date: 20150821
  Serious: Yes (Hospitalization)
  Sender: FDA-Public Use
  Company Number: CZ-ROCHE-1178046

PATIENT
  Age: 76 Year
  Sex: Male
  Weight: 80 kg

DRUGS (7)
  1. VEMURAFENIB [Suspect]
     Active Substance: VEMURAFENIB
     Indication: MALIGNANT MELANOMA
     Dosage: DATE OF LAST DOSE PRIOR TO SAE: 08/JAN/2013
     Route: 048
     Dates: start: 20121123
  2. FURON [Concomitant]
     Active Substance: FUROSEMIDE
     Route: 065
     Dates: start: 201208
  3. APO-AMLO [Concomitant]
     Route: 065
     Dates: start: 201005
  4. TENAXUM [Concomitant]
     Active Substance: RILMENIDINE
     Dosage: 1/TBL
     Route: 065
     Dates: start: 201205
  5. ANOPYRIN [Concomitant]
     Active Substance: ASPIRIN
     Route: 065
     Dates: start: 2012
  6. KALIUM CHLORATUM [Concomitant]
     Active Substance: POTASSIUM CHLORIDE
     Dosage: 0.5/TBL
     Route: 065
     Dates: start: 201208
  7. DETRALEX [Concomitant]
     Active Substance: DIOSMIN\HESPERIDIN
     Dosage: 1/TBL
     Route: 065
     Dates: start: 201208

REACTIONS (1)
  - Infection [Not Recovered/Not Resolved]

NARRATIVE: CASE EVENT DATE: 20130108
